FAERS Safety Report 11683719 (Version 1)
Quarter: 2015Q4

REPORT INFORMATION
  Report Type: Spontaneous
  Country: US (occurrence: US)
  Receive Date: 20151029
  Receipt Date: 20151029
  Transmission Date: 20160304
  Serious: Yes (Hospitalization)
  Sender: FDA-Public Use
  Company Number: US-ASTRAZENECA-2015SE76273

PATIENT
  Age: 65 Year
  Sex: Female
  Weight: 65.4 kg

DRUGS (7)
  1. LIPITOR [Concomitant]
     Active Substance: ATORVASTATIN CALCIUM
     Indication: BLOOD CHOLESTEROL INCREASED
     Route: 048
     Dates: start: 20120601
  2. AMBIEN [Suspect]
     Active Substance: ZOLPIDEM TARTRATE
     Indication: INSOMNIA
     Dosage: AS NEEDED
     Route: 048
     Dates: start: 2007
  3. GABAPENTIN. [Concomitant]
     Active Substance: GABAPENTIN
     Indication: NEURALGIA
     Route: 048
     Dates: start: 20120906
  4. D VITAMIN [Concomitant]
     Dates: start: 2001
  5. TOPROL XL [Suspect]
     Active Substance: METOPROLOL SUCCINATE
     Indication: WOLFF-PARKINSON-WHITE SYNDROME
     Dosage: TWICE DAILY
     Route: 048
     Dates: start: 1998
  6. CALCIUM [Concomitant]
     Active Substance: CALCIUM
     Dates: start: 2001
  7. METROGEL [Concomitant]
     Active Substance: METRONIDAZOLE
     Indication: ROSACEA
     Dosage: DAILY
     Route: 061
     Dates: start: 1997

REACTIONS (10)
  - Dyspepsia [Not Recovered/Not Resolved]
  - Off label use [Not Recovered/Not Resolved]
  - Arrhythmia [Not Recovered/Not Resolved]
  - Rosacea [Unknown]
  - Myocardial infarction [Recovered/Resolved]
  - Neuralgia [Unknown]
  - Chest pain [Unknown]
  - Hypertension [Unknown]
  - Insomnia [Unknown]
  - Product use issue [Not Recovered/Not Resolved]

NARRATIVE: CASE EVENT DATE: 1998
